FAERS Safety Report 11311621 (Version 1)
Quarter: 2015Q3

REPORT INFORMATION
  Report Type: Spontaneous
  Country: US (occurrence: None)
  Receive Date: 20150723
  Receipt Date: 20150723
  Transmission Date: 20151125
  Serious: Yes (Death, Hospitalization, Other)
  Sender: FDA-Public Use
  Company Number: US-ZYDUS-008638

PATIENT
  Age: 43 Year
  Sex: Female
  Weight: 63 kg

DRUGS (2)
  1. ALL OTHER THERAPEUTIC PRODUCTS [Suspect]
     Active Substance: UNSPECIFIED INGREDIENT
  2. PROPRANOLOL [Suspect]
     Active Substance: PROPRANOLOL\PROPRANOLOL HYDROCHLORIDE

REACTIONS (8)
  - Cardiac arrest [None]
  - Cardiogenic shock [None]
  - Suicide attempt [None]
  - Hyperlipidaemia [None]
  - Toxicologic test abnormal [None]
  - Intentional overdose [None]
  - Laboratory test interference [None]
  - Toxicity to various agents [None]
